FAERS Safety Report 7868738-1 (Version None)
Quarter: 2011Q4

REPORT INFORMATION
  Report Type: 
  Country: None (occurrence: None)
  Receive Date: 20111026
  Receipt Date: 20111026
  Transmission Date: 20120403
  Serious: Yes (Death, Hospitalization)
  Sender: FDA-Public Use
  Company Number: None

PATIENT
  Sex: Male
  Weight: 65.4 kg

DRUGS (1)
  1. CISPLATIN [Suspect]
     Dosage: 352 MG
     Dates: end: 20080318

REACTIONS (11)
  - WEIGHT DECREASED [None]
  - UNRESPONSIVE TO STIMULI [None]
  - SEPSIS [None]
  - DYSPHAGIA [None]
  - REGURGITATION [None]
  - FAILURE TO THRIVE [None]
  - HYPOGLYCAEMIA [None]
  - PNEUMONIA ASPIRATION [None]
  - RESPIRATORY FAILURE [None]
  - CONGESTIVE CARDIOMYOPATHY [None]
  - MALNUTRITION [None]
